FAERS Safety Report 7700448-3 (Version None)
Quarter: 2011Q3

REPORT INFORMATION
  Report Type: 
  Country: None (occurrence: None)
  Receive Date: 20110822
  Receipt Date: 20110808
  Transmission Date: 20111222
  Serious: Yes (Hospitalization)
  Sender: FDA-Public Use
  Company Number: JP-MYLANLABS-2011S1016615

PATIENT
  Age: 19 Year
  Sex: Male
  Weight: 57 kg

DRUGS (3)
  1. PHENYTOIN [Suspect]
     Dosage: 250MG
     Route: 065
  2. PHENYTOIN [Suspect]
     Dosage: 200MG
     Route: 065
  3. PHENYTOIN [Suspect]
     Indication: EPILEPSY
     Dosage: 200MG; LATER INCREASED TO 250MG
     Route: 065

REACTIONS (4)
  - NYSTAGMUS [None]
  - DEMYELINATING POLYNEUROPATHY [None]
  - POISONING [None]
  - LEUKOENCEPHALOPATHY [None]
